FAERS Safety Report 7176876-4 (Version None)
Quarter: 2010Q4

REPORT INFORMATION
  Report Type: 
  Country: None (occurrence: None)
  Receive Date: 20101220
  Receipt Date: 20101209
  Transmission Date: 20110411
  Serious: Yes (Hospitalization)
  Sender: FDA-Public Use
  Company Number: FR-JNJFOC-20100807931

PATIENT
  Sex: Male

DRUGS (12)
  1. CONTRAMAL [Suspect]
     Indication: HEADACHE
     Route: 042
  2. IXPRIM [Suspect]
     Indication: HEADACHE
     Route: 048
  3. CRESTOR [Concomitant]
     Route: 048
  4. TOPIRAMATE [Concomitant]
     Route: 048
  5. NEXIUM [Concomitant]
     Route: 048
  6. AVLOCARDYL [Concomitant]
     Route: 048
  7. SEROPLEX [Concomitant]
     Route: 048
  8. CREON [Concomitant]
     Dosage: 12000 IU
     Route: 048
  9. DOGMATIL [Concomitant]
     Route: 048
  10. DOLIPRANE [Concomitant]
     Route: 048
  11. HUMALOG [Concomitant]
     Indication: TYPE 1 DIABETES MELLITUS
     Dosage: 32 IU
     Route: 058
  12. PERFALGAN [Concomitant]
     Indication: HEADACHE
     Route: 042

REACTIONS (1)
  - PANCREATITIS ACUTE [None]
